FAERS Safety Report 23365901 (Version 1)
Quarter: 2024Q1

REPORT INFORMATION
  Report Type: Spontaneous
  Country: US (occurrence: US)
  Receive Date: 20240104
  Receipt Date: 20240104
  Transmission Date: 20240410
  Serious: No
  Sender: FDA-Public Use
  Company Number: US-SA-2019SA107454

PATIENT
  Age: 35 Year
  Sex: Female

DRUGS (1)
  1. ASPERCREME WARMING PATCH [Suspect]
     Active Substance: CAPSAICIN
     Indication: Product used for unknown indication
     Route: 065

REACTIONS (2)
  - Product adhesion issue [Unknown]
  - No adverse event [Unknown]
